FAERS Safety Report 24553365 (Version 1)
Quarter: 2024Q4

REPORT INFORMATION
  Report Type: Spontaneous
  Country: DE (occurrence: DE)
  Receive Date: 20241028
  Receipt Date: 20241028
  Transmission Date: 20250114
  Serious: No
  Sender: ROCHE
  Company Number: DE-IPSEN Group, Research and Development-2024-04533

PATIENT
  Age: 17 Year
  Sex: Male
  Weight: 62.0 kg

DRUGS (1)
  1. NUTROPIN AQ [Suspect]
     Active Substance: SOMATROPIN
     Indication: Growth disorder
     Route: 065
     Dates: end: 2023

REACTIONS (3)
  - Liver function test abnormal [Unknown]
  - Granulocytes abnormal [Unknown]
  - Off label use [Unknown]
